FAERS Safety Report 25906443 (Version 1)
Quarter: 2025Q4

REPORT INFORMATION
  Report Type: Spontaneous
  Country: US (occurrence: US)
  Receive Date: 20251010
  Receipt Date: 20251010
  Transmission Date: 20260118
  Serious: Yes (Hospitalization)
  Sender: BIOVITRUM
  Company Number: US-BIOVITRUM-2025-US-012926

PATIENT
  Age: 70 Year
  Sex: Female

DRUGS (3)
  1. KINERET [Suspect]
     Active Substance: ANAKINRA
     Indication: Juvenile idiopathic arthritis
     Dosage: DAILY
     Route: 058
  2. KINERET [Suspect]
     Active Substance: ANAKINRA
     Indication: Haemophagocytic lymphohistiocytosis
     Dosage: 9 AM AND 9 PM
  3. KINERET [Suspect]
     Active Substance: ANAKINRA
     Indication: Still^s disease

REACTIONS (8)
  - Injection site discolouration [Unknown]
  - Injection site haemorrhage [Unknown]
  - Malaise [Unknown]
  - Incorrect dose administered [Unknown]
  - Insurance issue [Unknown]
  - Intentional product misuse [Unknown]
  - Juvenile idiopathic arthritis [Unknown]
  - Condition aggravated [Unknown]
